FAERS Safety Report 23290285 (Version 1)
Quarter: 2023Q4

REPORT INFORMATION
  Report Type: Report from Study
  Country: US (occurrence: US)
  Receive Date: 20231213
  Receipt Date: 20231213
  Transmission Date: 20240109
  Serious: No
  Sender: FDA-Public Use
  Company Number: US-ALXN-A202301208

PATIENT
  Sex: Male

DRUGS (14)
  1. SOLIRIS [Suspect]
     Active Substance: ECULIZUMAB
     Indication: Myasthenia gravis
     Dosage: UNK
     Route: 065
     Dates: start: 20221221
  2. ULTOMIRIS [Suspect]
     Active Substance: RAVULIZUMAB-CWVZ
     Indication: Myasthenia gravis
     Dosage: UNK
     Route: 065
  3. MESTINON [Suspect]
     Active Substance: PYRIDOSTIGMINE BROMIDE
     Indication: Product used for unknown indication
     Dosage: 60 MG, QID
     Route: 048
  4. HUMAN IMMUNOGLOBULIN G [Concomitant]
     Active Substance: HUMAN IMMUNOGLOBULIN G
     Indication: Product used for unknown indication
     Dosage: UNK
     Route: 065
  5. ZYLOPRIM [Concomitant]
     Active Substance: ALLOPURINOL
     Indication: Product used for unknown indication
     Dosage: 300 MG, QD (1 TAB)
     Route: 048
     Dates: start: 20150113
  6. PRINIVIL [Concomitant]
     Active Substance: LISINOPRIL
     Indication: Product used for unknown indication
     Dosage: 40 MG, QD (1 TAB)
     Route: 048
     Dates: start: 20150113
  7. ZESTRIL [Concomitant]
     Active Substance: LISINOPRIL
     Indication: Product used for unknown indication
     Dosage: 40 MG, QD (1 TAB)
     Route: 048
     Dates: start: 20150113
  8. GLUCOPHAGE [Concomitant]
     Active Substance: METFORMIN HYDROCHLORIDE
     Indication: Product used for unknown indication
     Dosage: 1000 MG, (1 TAB), BID
     Route: 048
     Dates: start: 20150113
  9. DELTASONE                          /00016001/ [Concomitant]
     Indication: Product used for unknown indication
     Dosage: 10 MG, QD (4 TAB OF 2.5 MG)
     Route: 065
  10. DELTASONE                          /00016001/ [Concomitant]
     Dosage: 7.5 MG, QD
     Route: 065
  11. DELTASONE                          /00016001/ [Concomitant]
     Dosage: 4 TAB, QD
     Route: 048
     Dates: start: 20221215
  12. DELTASONE                          /00016001/ [Concomitant]
     Dosage: 3 TAB, QD
     Route: 048
  13. DELTASONE                          /00016001/ [Concomitant]
     Dosage: 2 TAB, QD
     Route: 048
  14. DELTASONE                          /00016001/ [Concomitant]
     Dosage: 1 TAB, QD
     Route: 048

REACTIONS (10)
  - Blood glucose increased [Unknown]
  - Head injury [Unknown]
  - Speech disorder [Unknown]
  - Diplopia [Recovered/Resolved]
  - Muscular weakness [Unknown]
  - Visual impairment [Unknown]
  - Dyspnoea [Unknown]
  - Vision blurred [Unknown]
  - Fatigue [Unknown]
  - Diarrhoea [Unknown]
